FAERS Safety Report 11325230 (Version 4)
Quarter: 2015Q4

REPORT INFORMATION
  Report Type: Spontaneous
  Country: US (occurrence: US)
  Receive Date: 20150730
  Receipt Date: 20151009
  Transmission Date: 20160304
  Serious: Yes (Hospitalization, Other)
  Sender: FDA-Public Use
  Company Number: PHEH2015US014197

PATIENT
  Age: 77 Year
  Sex: Female
  Weight: 80 kg

DRUGS (13)
  1. DIOVAN [Suspect]
     Active Substance: VALSARTAN
     Dosage: 40 MG, BID
     Route: 065
  2. CLONIDINE. [Suspect]
     Active Substance: CLONIDINE
     Indication: PRODUCT USED FOR UNKNOWN INDICATION
     Route: 065
  3. DIOVAN [Suspect]
     Active Substance: VALSARTAN
     Dosage: 40 MG, Q12H
     Route: 065
  4. NORVASC [Suspect]
     Active Substance: AMLODIPINE BESYLATE
     Indication: PRODUCT USED FOR UNKNOWN INDICATION
     Dosage: 2.5 MG, Q8H
     Route: 065
  5. DIOVAN [Suspect]
     Active Substance: VALSARTAN
     Dosage: 160 MG, UNK
     Route: 065
  6. COREG CR [Suspect]
     Active Substance: CARVEDILOL PHOSPHATE
     Indication: BLOOD PRESSURE MANAGEMENT
     Dosage: 12.5 MG, Q6H
     Route: 065
  7. COREG CR [Suspect]
     Active Substance: CARVEDILOL PHOSPHATE
     Dosage: 6.25 MG, Q6H
     Route: 065
  8. EXEMESTANE. [Suspect]
     Active Substance: EXEMESTANE
     Indication: PRODUCT USED FOR UNKNOWN INDICATION
     Dosage: 25 MG, UNK
     Route: 065
     Dates: end: 20150601
  9. TOPROL XL [Suspect]
     Active Substance: METOPROLOL SUCCINATE
     Indication: PRODUCT USED FOR UNKNOWN INDICATION
     Dosage: 400 MG, QD
     Route: 065
     Dates: start: 19950307
  10. TOPROL XL [Suspect]
     Active Substance: METOPROLOL SUCCINATE
     Dosage: 100 MG, BID
     Route: 065
  11. DIOVAN [Suspect]
     Active Substance: VALSARTAN
     Indication: HYPERTENSION
     Dosage: 40 MG, UNK
     Route: 065
  12. DIOVAN [Suspect]
     Active Substance: VALSARTAN
     Dosage: 80 MG, TID
     Route: 065
  13. HYDROCHLOROTHIAZIDE. [Suspect]
     Active Substance: HYDROCHLOROTHIAZIDE
     Indication: BLOOD PRESSURE MANAGEMENT
     Dosage: 12.5 MG, Q12H
     Route: 065

REACTIONS (12)
  - Drug intolerance [Unknown]
  - Oedema peripheral [Unknown]
  - Blood creatinine increased [Unknown]
  - Blood pressure increased [Unknown]
  - Blood cholesterol increased [Unknown]
  - Headache [Unknown]
  - Blood pressure inadequately controlled [Unknown]
  - Hypotension [Unknown]
  - Ataxia [Unknown]
  - Blood potassium increased [Unknown]
  - Lower extremity mass [Unknown]
  - Breast cancer [Unknown]

NARRATIVE: CASE EVENT DATE: 20090728
